FAERS Safety Report 15948250 (Version 1)
Quarter: 2019Q1

REPORT INFORMATION
  Report Type: Spontaneous
  Country: US (occurrence: US)
  Receive Date: 20190211
  Receipt Date: 20190211
  Transmission Date: 20190417
  Serious: No
  Sender: FDA-Public Use
  Company Number: US-SA-2019SA038247

PATIENT
  Sex: Female

DRUGS (14)
  1. FENOFIBRATE. [Concomitant]
     Active Substance: FENOFIBRATE
  2. AMOXICILLIN. [Concomitant]
     Active Substance: AMOXICILLIN
  3. LEVOTHYROX [Concomitant]
     Active Substance: LEVOTHYROXINE
  4. METFORMIN HCL [Concomitant]
     Active Substance: METFORMIN HYDROCHLORIDE
  5. CLORAZEPAAT [Concomitant]
  6. HUMIRA [Concomitant]
     Active Substance: ADALIMUMAB
  7. KEVZARA [Suspect]
     Active Substance: SARILUMAB
     Route: 058
  8. CRESTOR [Concomitant]
     Active Substance: ROSUVASTATIN CALCIUM
  9. CICLOPIROX. [Concomitant]
     Active Substance: CICLOPIROX
  10. LIDOCAINE. [Concomitant]
     Active Substance: LIDOCAINE
  11. METHOTREXATE. [Concomitant]
     Active Substance: METHOTREXATE
  12. FLUOXETINE [Concomitant]
     Active Substance: FLUOXETINE HYDROCHLORIDE
  13. GABAPENTIN. [Concomitant]
     Active Substance: GABAPENTIN
  14. NAFTIN [Concomitant]
     Active Substance: NAFTIFINE HYDROCHLORIDE

REACTIONS (1)
  - Hypersensitivity [Not Recovered/Not Resolved]
